FAERS Safety Report 5810307-9 (Version None)
Quarter: 2008Q3

REPORT INFORMATION
  Report Type: 
  Country: None (occurrence: None)
  Receive Date: 20080715
  Receipt Date: 20080319
  Transmission Date: 20090109
  Serious: No
  Sender: FDA-Public Use
  Company Number: A0716415A

PATIENT
  Sex: Female

DRUGS (1)
  1. IMITREX [Suspect]

REACTIONS (1)
  - DIZZINESS [None]
